FAERS Safety Report 8297473-3 (Version None)
Quarter: 2012Q2

REPORT INFORMATION
  Report Type: 
  Country: None (occurrence: None)
  Receive Date: 20120419
  Receipt Date: 20120404
  Transmission Date: 20120825
  Serious: Yes (Other)
  Sender: FDA-Public Use
  Company Number: PHHY2012IT032394

PATIENT
  Age: 58 Year

DRUGS (1)
  1. DEFEROXAMINE MESYLATE [Suspect]
     Indication: THALASSAEMIA BETA
     Dosage: 2 G, UNK

REACTIONS (3)
  - FUNDOSCOPY ABNORMAL [None]
  - VISION BLURRED [None]
  - VISUAL ACUITY REDUCED [None]
